FAERS Safety Report 8081735-9 (Version None)
Quarter: 2012Q1

REPORT INFORMATION
  Report Type: 
  Country: None (occurrence: None)
  Receive Date: 20120130
  Receipt Date: 20120119
  Transmission Date: 20120608
  Serious: Yes (Hospitalization)
  Sender: FDA-Public Use
  Company Number: CA-ELI_LILLY_AND_COMPANY-CA201201005712

PATIENT
  Sex: Male

DRUGS (9)
  1. PLAVIX [Concomitant]
  2. METOPROLOL TARTRATE [Concomitant]
     Dosage: UNK
  3. EFFIENT [Suspect]
     Dosage: UNK, UNKNOWN
     Dates: start: 20120101
  4. ASPIRIN [Concomitant]
     Dosage: UNK
  5. EFFEXOR [Concomitant]
     Dosage: UNK
  6. PANTOPRAZOLE SODIUM [Concomitant]
     Dosage: UNK
  7. REACTINE [Concomitant]
     Indication: SEASONAL ALLERGY
     Dosage: UNK
  8. WARFARIN SODIUM [Concomitant]
  9. EFFIENT [Suspect]
     Indication: MYOCARDIAL INFARCTION
     Dosage: 10 MG, QD
     Dates: start: 20110606, end: 20111228

REACTIONS (6)
  - HOSPITALISATION [None]
  - ASTHENIA [None]
  - DYSPNOEA [None]
  - COUGH [None]
  - FATIGUE [None]
  - GAIT DISTURBANCE [None]
